FAERS Safety Report 5358917-X (Version None)
Quarter: 2007Q2

REPORT INFORMATION
  Report Type: 
  Country: None (occurrence: None)
  Receive Date: 20070615
  Receipt Date: 20070611
  Transmission Date: 20071010
  Serious: Yes (Hospitalization)
  Sender: FDA-Public Use
  Company Number: B0473804A

PATIENT
  Age: 43 Year
  Sex: Female

DRUGS (2)
  1. PAXIL [Suspect]
     Indication: DEPRESSION
     Dosage: 20MG PER DAY
     Route: 048
  2. BENZODIAZEPINE [Concomitant]
     Indication: DEPRESSION
     Route: 048

REACTIONS (8)
  - DEPRESSED LEVEL OF CONSCIOUSNESS [None]
  - HEART RATE INCREASED [None]
  - HYPERREFLEXIA [None]
  - MYOCLONUS [None]
  - PYREXIA [None]
  - RESPIRATORY DEPRESSION [None]
  - RESTLESSNESS [None]
  - SEROTONIN SYNDROME [None]
